FAERS Safety Report 7221361-4 (Version None)
Quarter: 2011Q1

REPORT INFORMATION
  Report Type: 
  Country: None (occurrence: None)
  Receive Date: 20110112
  Receipt Date: 20101021
  Transmission Date: 20110831
  Serious: No
  Sender: FDA-Public Use
  Company Number: US-BAYER-201022838BCC

PATIENT
  Sex: Female
  Weight: 72.727 kg

DRUGS (3)
  1. ALEVE [Suspect]
     Dosage: 220 MG, ONCE
     Route: 048
     Dates: start: 20101018
  2. ISOSORBIDE [ISOSORBIDE] [Concomitant]
  3. ATENOLOL [Concomitant]

REACTIONS (1)
  - INSOMNIA [None]
